FAERS Safety Report 16742537 (Version 1)
Quarter: 2019Q3

REPORT INFORMATION
  Report Type: Report from Study
  Country: IL (occurrence: IL)
  Receive Date: 20190826
  Receipt Date: 20190826
  Transmission Date: 20191005
  Serious: Yes (Hospitalization, Other)
  Sender: FDA-Public Use
  Company Number: IL-009507513-1908ISR008467

PATIENT
  Age: 82 Year
  Sex: Male

DRUGS (1)
  1. SITAGLIPTIN PHOSPHATE [Suspect]
     Active Substance: SITAGLIPTIN PHOSPHATE
     Indication: DIABETES MELLITUS
     Dosage: 50 MILLIGRAM, QD, TABLET
     Route: 048
     Dates: start: 20180508

REACTIONS (5)
  - Blood glucose increased [Unknown]
  - Diabetes mellitus inadequate control [Unknown]
  - Myocardial infarction [Unknown]
  - Mood altered [Unknown]
  - Inflammation [Unknown]

NARRATIVE: CASE EVENT DATE: 2018
